FAERS Safety Report 25364617 (Version 2)
Quarter: 2025Q2

REPORT INFORMATION
  Report Type: Spontaneous
  Country: IN (occurrence: IN)
  Receive Date: 20250527
  Receipt Date: 20250601
  Transmission Date: 20250717
  Serious: Yes (Hospitalization, Other)
  Sender: SANOFI AVENTIS
  Company Number: IN-MLMSERVICE-20250514-PI507379-00308-1

PATIENT
  Age: 26 Year
  Sex: Male

DRUGS (1)
  1. TAMSULOSIN HYDROCHLORIDE [Suspect]
     Active Substance: TAMSULOSIN HYDROCHLORIDE
     Indication: Ureterolithiasis
     Dosage: 0.4 MG, QD
     Route: 048

REACTIONS (3)
  - Priapism [Recovering/Resolving]
  - Spontaneous penile erection [Recovering/Resolving]
  - Hypoxia [Recovering/Resolving]
